FAERS Safety Report 17196950 (Version 1)
Quarter: 2019Q4

REPORT INFORMATION
  Report Type: Spontaneous
  Country: US (occurrence: US)
  Receive Date: 20191224
  Receipt Date: 20191224
  Transmission Date: 20200122
  Serious: No
  Sender: FDA-Public Use
  Company Number: US-SA-2019SA350181

PATIENT
  Age: 8 Year
  Sex: Male

DRUGS (1)
  1. DUPIXENT [Suspect]
     Active Substance: DUPILUMAB
     Dosage: 200 MG, OTHER
     Route: 058
     Dates: start: 2019

REACTIONS (5)
  - Aphthous ulcer [Unknown]
  - Product use issue [Unknown]
  - Eye irritation [Unknown]
  - Oral herpes [Unknown]
  - Nasal discomfort [Unknown]
